FAERS Safety Report 9053929 (Version 1)
Quarter: 2013Q1

REPORT INFORMATION
  Report Type: Spontaneous
  Country: US (occurrence: None)
  Receive Date: 20130201
  Receipt Date: 20130201
  Transmission Date: 20140127
  Serious: Yes (Hospitalization)
  Sender: FDA-Public Use
  Company Number: None

PATIENT
  Sex: Female

DRUGS (5)
  1. AFINITOR [Suspect]
     Route: 048
     Dates: start: 20121213
  2. EXEMESTAME [Concomitant]
  3. DEXAMETHASONE [Concomitant]
  4. HYDROCODONE/APAP [Concomitant]
  5. PAMIDRONATE [Concomitant]

REACTIONS (1)
  - Thrombosis [None]
